FAERS Safety Report 7021638-1 (Version None)
Quarter: 2010Q3

REPORT INFORMATION
  Report Type: 
  Country: None (occurrence: None)
  Receive Date: 20100928
  Receipt Date: 20100914
  Transmission Date: 20110219
  Serious: Yes (Hospitalization)
  Sender: FDA-Public Use
  Company Number: 2010SP034544

PATIENT
  Sex: Female
  Weight: 53 kg

DRUGS (1)
  1. IMPLANON [Suspect]
     Indication: CONTRACEPTION
     Dates: start: 20000101, end: 20100914

REACTIONS (4)
  - COMPLICATION OF DEVICE INSERTION [None]
  - COMPLICATION OF DEVICE REMOVAL [None]
  - HYPOAESTHESIA [None]
  - IMPLANT SITE REACTION [None]
